FAERS Safety Report 20997995 (Version 1)
Quarter: 2022Q2

REPORT INFORMATION
  Report Type: Spontaneous
  Country: US (occurrence: US)
  Receive Date: 20220623
  Receipt Date: 20220623
  Transmission Date: 20220720
  Serious: No
  Sender: FDA-Public Use
  Company Number: US-BRISTOL-MYERS SQUIBB COMPANY-2022-062045

PATIENT
  Age: 55 Year
  Sex: Male
  Weight: 91.63 kg

DRUGS (11)
  1. REVLIMID [Suspect]
     Active Substance: LENALIDOMIDE
     Indication: Plasma cell myeloma
     Route: 048
     Dates: start: 20210602
  2. ASPIRIN [Concomitant]
     Active Substance: ASPIRIN
  3. ZOMETA [Concomitant]
     Active Substance: ZOLEDRONIC ACID
  4. OLMESARTAN [Concomitant]
     Active Substance: OLMESARTAN
  5. NEURONTIN [Concomitant]
     Active Substance: GABAPENTIN
  6. NEURIN [CYANOCOBALAMIN] [Concomitant]
  7. IMODIUM A-D [Concomitant]
     Active Substance: LOPERAMIDE HYDROCHLORIDE
  8. SYNTHROID [Concomitant]
     Active Substance: LEVOTHYROXINE SODIUM
  9. LOSARTAN [Concomitant]
     Active Substance: LOSARTAN
  10. AMLODIPINE\VALSARTAN [Concomitant]
     Active Substance: AMLODIPINE\VALSARTAN
  11. MORNIFLUMATE [Concomitant]
     Active Substance: MORNIFLUMATE

REACTIONS (2)
  - Diarrhoea [Unknown]
  - Abdominal discomfort [Unknown]
